FAERS Safety Report 22065887 (Version 2)
Quarter: 2023Q2

REPORT INFORMATION
  Report Type: Spontaneous
  Country: CN (occurrence: CN)
  Receive Date: 20230306
  Receipt Date: 20230414
  Transmission Date: 20230721
  Serious: Yes (Other)
  Sender: FDA-Public Use
  Company Number: CN-BIOVITRUM-2023-CN-005765

PATIENT
  Age: 52 Year
  Sex: Male
  Weight: 68 kg

DRUGS (2)
  1. AVATROMBOPAG [Suspect]
     Active Substance: AVATROMBOPAG
     Indication: Hepatocellular carcinoma
     Dosage: 1 IN 1 DAY
     Route: 048
     Dates: start: 20220615, end: 20220619
  2. AVATROMBOPAG [Suspect]
     Active Substance: AVATROMBOPAG

REACTIONS (2)
  - Abdominal infection [Recovered/Resolved]
  - Hypoproteinaemia [Recovered/Resolved]

NARRATIVE: CASE EVENT DATE: 20220706
